FAERS Safety Report 17229583 (Version 4)
Quarter: 2020Q3

REPORT INFORMATION
  Report Type: Spontaneous
  Country: US (occurrence: US)
  Receive Date: 20200103
  Receipt Date: 20200803
  Transmission Date: 20201102
  Serious: Yes (Other)
  Sender: FDA-Public Use
  Company Number: US-PFIZER INC-2019557635

PATIENT
  Age: 73 Year
  Sex: Female

DRUGS (1)
  1. XELJANZ [Suspect]
     Active Substance: TOFACITINIB CITRATE
     Dosage: 5 MG
     Dates: start: 201911

REACTIONS (10)
  - Limb mass [Unknown]
  - Arthritis [Unknown]
  - Condition aggravated [Unknown]
  - Laryngitis [Unknown]
  - Depression [Unknown]
  - Arthropathy [Unknown]
  - Bone pain [Unknown]
  - Movement disorder [Unknown]
  - Bone erosion [Unknown]
  - Precancerous condition [Unknown]
